FAERS Safety Report 5379065-9 (Version None)
Quarter: 2007Q3

REPORT INFORMATION
  Report Type: 
  Country: None (occurrence: None)
  Receive Date: 20070705
  Receipt Date: 20070702
  Transmission Date: 20080115
  Serious: Yes (Death, Other)
  Sender: FDA-Public Use
  Company Number: US-ASTRAZENECA-2006UW21896

PATIENT
  Age: 528 Month
  Sex: Female
  Weight: 100 kg

DRUGS (4)
  1. SEROQUEL [Suspect]
     Route: 048
     Dates: start: 20010101, end: 20061220
  2. CLOZARIL [Concomitant]
  3. GEODON [Concomitant]
  4. RISPERDAL [Concomitant]

REACTIONS (2)
  - DEATH [None]
  - PANCREATITIS [None]
